FAERS Safety Report 7457286-9 (Version None)
Quarter: 2011Q2

REPORT INFORMATION
  Report Type: 
  Country: None (occurrence: None)
  Receive Date: 20110504
  Receipt Date: 20100615
  Transmission Date: 20111010
  Serious: No
  Sender: FDA-Public Use
  Company Number: US-SANOFI-AVENTIS-2010SA035467

PATIENT
  Age: 77 Year
  Sex: Female

DRUGS (4)
  1. SOLOSTAR [Suspect]
     Dates: start: 20100501
  2. SOLOSTAR [Suspect]
     Dates: start: 20100501
  3. LANTUS [Suspect]
     Dosage: DOSE:24 UNIT(S)
     Route: 058
     Dates: start: 20100501
  4. APIDRA [Suspect]
     Route: 065
     Dates: start: 20100501

REACTIONS (1)
  - VISUAL ACUITY REDUCED [None]
